FAERS Safety Report 17135944 (Version 3)
Quarter: 2020Q2

REPORT INFORMATION
  Report Type: Report from Study
  Country: None (occurrence: US)
  Receive Date: 20191210
  Receipt Date: 20200601
  Transmission Date: 20200713
  Serious: Yes (Hospitalization)
  Sender: FDA-Public Use
  Company Number: US-ABBVIE-19P-163-3175545-00

PATIENT
  Sex: Male

DRUGS (3)
  1. IMBRUVICA [Suspect]
     Active Substance: IBRUTINIB
     Indication: LYMPHOCYTIC LEUKAEMIA
     Route: 048
     Dates: start: 20190906
  2. IMBRUVICA [Suspect]
     Active Substance: IBRUTINIB
     Route: 048
     Dates: start: 201909
  3. IMBRUVICA [Suspect]
     Active Substance: IBRUTINIB
     Indication: LYMPHOCYTIC LEUKAEMIA
     Route: 048
     Dates: start: 201909

REACTIONS (7)
  - Feeling abnormal [Unknown]
  - Malaise [Unknown]
  - Depression [Unknown]
  - Hypoaesthesia [Unknown]
  - Fatigue [Unknown]
  - Blood potassium decreased [Unknown]
  - Asthenia [Unknown]

NARRATIVE: CASE EVENT DATE: 2019
